FAERS Safety Report 11023370 (Version 1)
Quarter: 2015Q2

REPORT INFORMATION
  Report Type: Report from Study
  Country: US (occurrence: US)
  Receive Date: 20150413
  Receipt Date: 20150413
  Transmission Date: 20150821
  Serious: Yes (Hospitalization)
  Sender: FDA-Public Use
  Company Number: PHEH2012US016914

PATIENT
  Age: 30 Year
  Sex: Female

DRUGS (5)
  1. EXTAVIA [Suspect]
     Active Substance: INTERFERON BETA-1B
     Dosage: 0.125 MG (0.5 ML), QOD, WEEK 3-4
     Route: 058
  2. EXTAVIA [Suspect]
     Active Substance: INTERFERON BETA-1B
     Dosage: 0.187 MG (0.75 ML), QOD, WEEK 5-6
     Route: 058
  3. EXTAVIA [Suspect]
     Active Substance: INTERFERON BETA-1B
     Indication: MULTIPLE SCLEROSIS
     Dosage: 0.0625 MG (0.25 ML), QOD, WEEK 1-2
     Route: 058
     Dates: start: 20120803
  4. EXTAVIA [Suspect]
     Active Substance: INTERFERON BETA-1B
     Dosage: 0.25 MG, (1 ML), QOD, WEEK 7 PLUS
     Route: 058
     Dates: start: 20120820
  5. ALEVE [Concomitant]
     Active Substance: NAPROXEN SODIUM
     Indication: PRODUCT USED FOR UNKNOWN INDICATION
     Dosage: UNK
     Route: 065

REACTIONS (17)
  - Muscle spasms [Recovering/Resolving]
  - Influenza like illness [Unknown]
  - Injection site discolouration [Unknown]
  - Abdominal distension [Recovering/Resolving]
  - Injection site erythema [Recovering/Resolving]
  - Injection site haemorrhage [Unknown]
  - Facial pain [Not Recovered/Not Resolved]
  - Injection site pain [Recovering/Resolving]
  - Protein urine present [Recovering/Resolving]
  - Hot flush [Unknown]
  - Injection site pruritus [Recovering/Resolving]
  - Blister [Not Recovered/Not Resolved]
  - Herpes zoster [Not Recovered/Not Resolved]
  - Hepatic enzyme increased [Not Recovered/Not Resolved]
  - Neck pain [Not Recovered/Not Resolved]
  - Myalgia [Recovered/Resolved]
  - Lymphadenopathy [Not Recovered/Not Resolved]

NARRATIVE: CASE EVENT DATE: 20120822
